FAERS Safety Report 6260286-8 (Version None)
Quarter: 2009Q3

REPORT INFORMATION
  Report Type: 
  Country: None (occurrence: None)
  Receive Date: 20090706
  Receipt Date: 20090624
  Transmission Date: 20100115
  Serious: Yes (Other)
  Sender: FDA-Public Use
  Company Number: 230021M08GBR

PATIENT
  Sex: Female

DRUGS (1)
  1. REBIF [Suspect]
     Dates: start: 20040601, end: 20080331

REACTIONS (3)
  - BRAIN MASS [None]
  - CONDITION AGGRAVATED [None]
  - INTRACRANIAL HYPOTENSION [None]
